FAERS Safety Report 4638784-X (Version None)
Quarter: 2005Q2

REPORT INFORMATION
  Report Type: 
  Country: None (occurrence: None)
  Receive Date: 20050328
  Receipt Date: 20041117
  Transmission Date: 20051028
  Serious: No
  Sender: FDA-Public Use
  Company Number: US_0411108679

PATIENT
  Sex: Female
  Weight: 57 kg

DRUGS (2)
  1. STRATTERA [Suspect]
     Indication: ATTENTION DEFICIT/HYPERACTIVITY DISORDER
     Dosage: 60 MG DAY
  2. PROZAC [Suspect]
     Indication: DEPRESSION

REACTIONS (6)
  - DIZZINESS [None]
  - DRY MOUTH [None]
  - DYSURIA [None]
  - NAUSEA [None]
  - URINARY RETENTION [None]
  - VISION BLURRED [None]
